APPROVED DRUG PRODUCT: ERYTHROMYCIN ESTOLATE
Active Ingredient: ERYTHROMYCIN ESTOLATE
Strength: EQ 125MG BASE/5ML
Dosage Form/Route: SUSPENSION;ORAL
Application: A062169 | Product #001
Applicant: COSETTE PHARMACEUTICALS INC
Approved: Oct 17, 1990 | RLD: No | RS: No | Type: DISCN